FAERS Safety Report 6988652-3 (Version None)
Quarter: 2010Q3

REPORT INFORMATION
  Report Type: 
  Country: None (occurrence: None)
  Receive Date: 20100916
  Receipt Date: 20100907
  Transmission Date: 20110219
  Serious: Yes (Hospitalization, Other)
  Sender: FDA-Public Use
  Company Number: US-JNJFOC-20100503238

PATIENT
  Age: 1 Year
  Sex: Male

DRUGS (4)
  1. CONCENTRATED MOTRIN INFANTS DROPS [Suspect]
     Route: 065
  2. CONCENTRATED MOTRIN INFANTS DROPS [Suspect]
     Indication: PYREXIA
     Route: 065
  3. CONCENTRATED TYLENOL INFANT DROPS [Suspect]
     Route: 065
  4. CONCENTRATED TYLENOL INFANT DROPS [Suspect]
     Indication: PYREXIA
     Route: 065

REACTIONS (4)
  - FEBRILE CONVULSION [None]
  - IRRITABILITY [None]
  - PRODUCT QUALITY ISSUE [None]
  - VOMITING [None]
